FAERS Safety Report 7199433-2 (Version None)
Quarter: 2010Q4

REPORT INFORMATION
  Report Type: 
  Country: None (occurrence: None)
  Receive Date: 20101228
  Receipt Date: 20101217
  Transmission Date: 20110411
  Serious: Yes (Hospitalization)
  Sender: FDA-Public Use
  Company Number: FR-JNJFOC-20101207164

PATIENT
  Age: 63 Year
  Sex: Female

DRUGS (5)
  1. CAELYX [Suspect]
     Indication: ILL-DEFINED DISORDER
     Route: 042
  2. AVASTIN [Suspect]
     Indication: ILL-DEFINED DISORDER
     Route: 042
  3. ZOPHREN [Suspect]
     Indication: ILL-DEFINED DISORDER
     Route: 042
  4. EZETROL [Concomitant]
     Route: 065
  5. CARBOPLATIN [Concomitant]
     Route: 065

REACTIONS (4)
  - ABDOMINAL PAIN [None]
  - BACK PAIN [None]
  - FEELING HOT [None]
  - HYPOTENSION [None]
